FAERS Safety Report 8329883-X (Version None)
Quarter: 2012Q2

REPORT INFORMATION
  Report Type: 
  Country: None (occurrence: None)
  Receive Date: 20120502
  Receipt Date: 20120421
  Transmission Date: 20120825
  Serious: Yes (Other)
  Sender: FDA-Public Use
  Company Number: US-JNJFOC-20120411823

PATIENT
  Sex: Female

DRUGS (2)
  1. TYLENOL SINUS [Suspect]
     Indication: MULTIPLE ALLERGIES
     Dosage: STARTED TAKING 2 DOSE FORMS DAILY AROUND 1997
     Route: 065
  2. TYLENOL SINUS [Suspect]
     Indication: SINUS DISORDER
     Dosage: STARTED TAKING 2 DOSE FORMS DAILY AROUND 1997
     Route: 065

REACTIONS (1)
  - CEREBROVASCULAR ACCIDENT [None]
